FAERS Safety Report 9444381 (Version 1)
Quarter: 2013Q3

REPORT INFORMATION
  Report Type: Spontaneous
  Country: US (occurrence: US)
  Receive Date: 20130807
  Receipt Date: 20130807
  Transmission Date: 20140515
  Serious: No
  Sender: FDA-Public Use
  Company Number: US-BAYER-2013-095387

PATIENT
  Age: 85 Year
  Sex: Male
  Weight: 70.3 kg

DRUGS (5)
  1. ALEVE CAPLET [Suspect]
     Indication: BACK PAIN
     Dosage: 2 DF, QD
     Route: 048
     Dates: start: 2011
  2. NIASPAN [Concomitant]
  3. METOPROLOL [Concomitant]
  4. MENADIONE [Concomitant]
  5. LISINOPRIL [Concomitant]

REACTIONS (1)
  - Incorrect drug administration duration [None]
